FAERS Safety Report 25790592 (Version 1)
Quarter: 2025Q3

REPORT INFORMATION
  Report Type: Spontaneous
  Country: US (occurrence: None)
  Receive Date: 20250910
  Receipt Date: 20250910
  Transmission Date: 20251020
  Serious: Yes (Hospitalization)
  Sender: FDA-CTU
  Company Number: None

PATIENT
  Sex: Female

DRUGS (4)
  1. OPSUMIT [Suspect]
     Active Substance: MACITENTAN
     Indication: Pulmonary arterial hypertension
     Dosage: FREQUENCY : DAILY;?
     Route: 048
     Dates: start: 20240223
  2. TADALAFIL [Concomitant]
     Active Substance: TADALAFIL
  3. STERILE WATER SDV (50ML) [Concomitant]
  4. OPSUMIT [Concomitant]
     Active Substance: MACITENTAN

REACTIONS (7)
  - Pyrexia [None]
  - Cough [None]
  - Back pain [None]
  - Pneumothorax [None]
  - Oxygen consumption increased [None]
  - Swelling face [None]
  - General physical health deterioration [None]
